FAERS Safety Report 18528144 (Version 1)
Quarter: 2020Q4

REPORT INFORMATION
  Report Type: Spontaneous
  Country: US (occurrence: US)
  Receive Date: 20201120
  Receipt Date: 20201120
  Transmission Date: 20210114
  Serious: No
  Sender: FDA-Public Use
  Company Number: US-GLAXOSMITHKLINE-US2020AMR223704

PATIENT

DRUGS (1)
  1. NUCALA [Suspect]
     Active Substance: MEPOLIZUMAB
     Indication: PRODUCT USED FOR UNKNOWN INDICATION
     Dosage: UNK
     Dates: start: 2017, end: 202008

REACTIONS (7)
  - Gait disturbance [Unknown]
  - Myalgia [Unknown]
  - Arthralgia [Unknown]
  - Asthenia [Unknown]
  - Pain [Unknown]
  - Back pain [Unknown]
  - Ill-defined disorder [Unknown]
